FAERS Safety Report 5816531-3 (Version None)
Quarter: 2008Q3

REPORT INFORMATION
  Report Type: 
  Country: None (occurrence: None)
  Receive Date: 20080721
  Receipt Date: 20080619
  Transmission Date: 20090109
  Serious: No
  Sender: FDA-Public Use
  Company Number: US-BAYER-200826281NA

PATIENT
  Age: 17 Year

DRUGS (1)
  1. CAMPATH [Suspect]
     Indication: RENAL FAILURE CHRONIC
     Dosage: TOTAL DAILY DOSE: 22 MG
     Route: 042
     Dates: start: 20080612, end: 20080612

REACTIONS (4)
  - ALANINE AMINOTRANSFERASE INCREASED [None]
  - ASPARTATE AMINOTRANSFERASE INCREASED [None]
  - BILIRUBIN CONJUGATED INCREASED [None]
  - BLOOD BILIRUBIN UNCONJUGATED INCREASED [None]
